FAERS Safety Report 5829303-0 (Version None)
Quarter: 2008Q3

REPORT INFORMATION
  Report Type: 
  Country: None (occurrence: None)
  Receive Date: 20080731
  Receipt Date: 20080708
  Transmission Date: 20090109
  Serious: No
  Sender: FDA-Public Use
  Company Number: US-BOEHRINGER INGELHEIM GMBH, GERMANY-2008-BP-09412BP

PATIENT

DRUGS (13)
  1. MIRAPEX [Suspect]
     Indication: PARKINSONISM
     Route: 048
  2. MIRAPEX [Suspect]
     Route: 048
  3. GLYBURIDE [Concomitant]
     Route: 048
  4. LEVOTHYROTINE [Concomitant]
  5. LISINOPRIL [Concomitant]
  6. KLONOPIN [Concomitant]
  7. ENTERIC ASPIRIN [Concomitant]
  8. DOCUSATE SODIUM [Concomitant]
  9. TEGRETOL [Concomitant]
  10. SEROQUEL [Concomitant]
  11. MIRALAX [Concomitant]
     Indication: CONSTIPATION
  12. MULTI-VITAMIN [Concomitant]
  13. AMANTADINE HCL [Concomitant]

REACTIONS (2)
  - RESTLESS LEGS SYNDROME [None]
  - SOMNOLENCE [None]
